FAERS Safety Report 5362895-7 (Version None)
Quarter: 2007Q2

REPORT INFORMATION
  Report Type: 
  Country: None (occurrence: None)
  Receive Date: 20070612
  Receipt Date: 20070531
  Transmission Date: 20071010
  Serious: Yes (Other)
  Sender: FDA-Public Use
  Company Number: B0473303A

PATIENT
  Age: 72 Year
  Sex: Female

DRUGS (2)
  1. LITHIUM SALT (FORMULATION UNKNOWN) (GENERIC) (LITHIUM SALT) [Suspect]
     Indication: BIPOLAR DISORDER
     Dosage: 400 MG / UNKNOWN / UNKNOWN
  2. TRIFLUOPERAZINE HCL [Concomitant]

REACTIONS (11)
  - ANKLE FRACTURE [None]
  - BLOOD CREATINE PHOSPHOKINASE INCREASED [None]
  - CARDIOVASCULAR INSUFFICIENCY [None]
  - DISSEMINATED INTRAVASCULAR COAGULATION [None]
  - DRUG INEFFECTIVE [None]
  - FIBULA FRACTURE [None]
  - HAEMORRHAGE [None]
  - NEPHROGENIC DIABETES INSIPIDUS [None]
  - RENAL IMPAIRMENT [None]
  - ROAD TRAFFIC ACCIDENT [None]
  - SKIN INJURY [None]
